FAERS Safety Report 23524491 (Version 1)
Quarter: 2024Q1

REPORT INFORMATION
  Report Type: 
  Country: None (occurrence: None)
  Receive Date: 20240214
  Receipt Date: 20240214
  Transmission Date: 20240409
  Serious: No
  Sender: FDA-Public Use
  Company Number: DE-ROCHE-3159139

PATIENT
  Weight: 55 kg

DRUGS (17)
  1. OCREVUS [Suspect]
     Active Substance: OCRELIZUMAB
     Dates: start: 20180425, end: 20180509
  2. OCREVUS [Suspect]
     Active Substance: OCRELIZUMAB
     Dates: start: 20181105
  3. IBUPROFEN [Concomitant]
     Active Substance: IBUPROFEN
  4. ACETAMINOPHEN [Concomitant]
     Active Substance: ACETAMINOPHEN
  5. QUETIAPINE [Concomitant]
     Active Substance: QUETIAPINE
     Dates: start: 202008
  6. QUETIAPINE [Concomitant]
     Active Substance: QUETIAPINE
     Dates: start: 20180503, end: 202006
  7. QUETIAPINE [Concomitant]
     Active Substance: QUETIAPINE
     Dates: start: 20200605, end: 202008
  8. MODAFINIL [Concomitant]
     Active Substance: MODAFINIL
     Dosage: DEFINITION OF THE INTERVAL: AS REQUIRED
     Dates: start: 20221109, end: 20230201
  9. PREDNISOLONE [Concomitant]
     Active Substance: PREDNISOLONE
     Dates: start: 20180425, end: 20180425
  10. MAXIM (GERMANY) [Concomitant]
  11. ZOPICLONE [Concomitant]
     Active Substance: ZOPICLONE
  12. ALFACALCIDOL [Concomitant]
     Active Substance: ALFACALCIDOL
     Dates: start: 20180601
  13. VALDOXAN [Concomitant]
     Active Substance: AGOMELATINE
     Dates: start: 202008
  14. COENZYM Q10 [Concomitant]
  15. CHOLECALCIFEROL [Concomitant]
     Active Substance: CHOLECALCIFEROL
     Dates: start: 20141020, end: 20180601
  16. L-CARNITIN [Concomitant]
  17. SERTRALINE HYDROCHLORIDE [Concomitant]
     Active Substance: SERTRALINE HYDROCHLORIDE
     Dates: start: 202008

REACTIONS (5)
  - Nasopharyngitis [None]
  - Fatigue [None]
  - Upper respiratory tract infection [None]
  - COVID-19 [None]
  - Depression [None]

NARRATIVE: CASE EVENT DATE: 20220418
